FAERS Safety Report 20609406 (Version 1)
Quarter: 2022Q1

REPORT INFORMATION
  Report Type: Report from Study
  Country: GB (occurrence: GB)
  Receive Date: 20220317
  Receipt Date: 20220317
  Transmission Date: 20220423
  Serious: Yes (Other)
  Sender: FDA-Public Use
  Company Number: GB-BAXTER-2022BAX005748

PATIENT
  Age: 58 Year
  Sex: Male

DRUGS (11)
  1. DOXORUBICIN HYDROCHLORIDE [Suspect]
     Active Substance: DOXORUBICIN HYDROCHLORIDE
     Indication: Lung adenocarcinoma
     Dosage: CAELYX  92MG + GLUCOSE 5% 546 ML
     Route: 042
     Dates: start: 20210726, end: 20210726
  2. DOXORUBICIN HYDROCHLORIDE [Suspect]
     Active Substance: DOXORUBICIN HYDROCHLORIDE
     Dosage: DRUG DISCONTINUED, CAELYX  92MG + GLUCOSE 5% 500 ML
     Route: 042
     Dates: start: 20210802, end: 20210802
  3. DOXORUBICIN HYDROCHLORIDE [Suspect]
     Active Substance: DOXORUBICIN HYDROCHLORIDE
     Dosage: DOSE REINTRODUCED
     Route: 042
  4. DEXTROSE [Suspect]
     Active Substance: DEXTROSE
     Indication: Medication dilution
     Dosage: CAELYX  92MG + GLUCOSE 5% 546 ML
     Route: 042
     Dates: start: 20210726, end: 20210726
  5. DEXTROSE [Suspect]
     Active Substance: DEXTROSE
     Dosage: CAELYX  92MG + GLUCOSE 5% 500 ML
     Route: 042
     Dates: start: 20210802, end: 20210802
  6. DEXTROSE [Suspect]
     Active Substance: DEXTROSE
     Dosage: DOSE REINTRODUCED:
     Route: 042
  7. CHOLECALCIFEROL [Concomitant]
     Active Substance: CHOLECALCIFEROL
     Indication: Vitamin D deficiency
     Route: 048
     Dates: start: 20210412
  8. ESOMEPRAZOLE [Concomitant]
     Active Substance: ESOMEPRAZOLE
     Indication: Gastrooesophageal reflux disease
     Route: 048
     Dates: start: 20210721
  9. MORPHINE SULFATE [Concomitant]
     Active Substance: MORPHINE SULFATE
     Indication: Abdominal pain upper
     Route: 048
     Dates: start: 20210721
  10. METOCLOPRAMIDE [Concomitant]
     Active Substance: METOCLOPRAMIDE
     Indication: Nausea
     Route: 048
     Dates: start: 20210726
  11. DOCUSATE [Concomitant]
     Active Substance: DOCUSATE
     Indication: Constipation
     Route: 048
     Dates: start: 20210723

REACTIONS (2)
  - Infusion related reaction [Recovered/Resolved]
  - Infusion related reaction [Recovered/Resolved]

NARRATIVE: CASE EVENT DATE: 20210726
